FAERS Safety Report 7524685-6 (Version None)
Quarter: 2011Q2

REPORT INFORMATION
  Report Type: 
  Country: None (occurrence: None)
  Receive Date: 20110606
  Receipt Date: 20110531
  Transmission Date: 20111010
  Serious: Yes (Other)
  Sender: FDA-Public Use
  Company Number: US-PFIZER INC-2011117460

PATIENT
  Age: 78 Year
  Sex: Male

DRUGS (2)
  1. PLAVIX [Concomitant]
     Dosage: UNK
  2. DEPO-TESTOSTERONE [Suspect]
     Indication: BLOOD TESTOSTERONE DECREASED
     Dosage: EVERY TWO WEEKS
     Dates: end: 20110401

REACTIONS (2)
  - INJECTION SITE HAEMORRHAGE [None]
  - MYOCARDIAL INFARCTION [None]
